FAERS Safety Report 18065447 (Version 1)
Quarter: 2020Q3

REPORT INFORMATION
  Report Type: Spontaneous
  Country: US (occurrence: US)
  Receive Date: 20200724
  Receipt Date: 20200724
  Transmission Date: 20201103
  Serious: No
  Sender: FDA-Public Use
  Company Number: US-GLENMARK PHARMACEUTICALS-2020GMK047899

PATIENT

DRUGS (2)
  1. TACROLIMUS. [Suspect]
     Active Substance: TACROLIMUS
     Indication: ROSACEA
     Dosage: 1 DOSAGE FORM, BID
     Route: 061
     Dates: start: 201905, end: 201907
  2. TACROLIMUS. [Suspect]
     Active Substance: TACROLIMUS
     Dosage: 1 DOSAGE FORM, BID (RECENT OINTMENT)
     Route: 061

REACTIONS (1)
  - Drug ineffective for unapproved indication [Unknown]
